FAERS Safety Report 7350198-0 (Version None)
Quarter: 2011Q1

REPORT INFORMATION
  Report Type: 
  Country: None (occurrence: None)
  Receive Date: 20110314
  Receipt Date: 20110309
  Transmission Date: 20110831
  Serious: Yes (Hospitalization)
  Sender: FDA-Public Use
  Company Number: B0705382A

PATIENT
  Sex: Male

DRUGS (12)
  1. CARDENALIN [Concomitant]
     Route: 048
  2. ARICEPT [Concomitant]
     Route: 048
  3. LANTUS [Concomitant]
     Route: 058
  4. PARIET [Concomitant]
     Route: 048
  5. MOHRUS TAPE [Concomitant]
     Route: 062
  6. FUROSEMIDE [Concomitant]
     Route: 065
  7. MAGNESIUM OXIDE [Concomitant]
     Route: 048
  8. CALBLOCK [Concomitant]
     Route: 048
  9. NOVORAPID [Concomitant]
     Route: 058
  10. VALTREX [Suspect]
     Dosage: 2000MG PER DAY
     Route: 048
     Dates: start: 20110223, end: 20110228
  11. KALIMATE [Concomitant]
     Route: 048
  12. NORVASC [Concomitant]
     Route: 048

REACTIONS (2)
  - HYPERGLYCAEMIA [None]
  - RENAL DISORDER [None]
